FAERS Safety Report 9412777 (Version 2)
Quarter: 2013Q3

REPORT INFORMATION
  Report Type: Spontaneous
  Country: CO (occurrence: CO)
  Receive Date: 20130722
  Receipt Date: 20130919
  Transmission Date: 20140515
  Serious: Yes (Death)
  Sender: FDA-Public Use
  Company Number: CO-JNJFOC-20130711910

PATIENT
  Sex: Female

DRUGS (2)
  1. YONDELIS [Suspect]
     Indication: OVARIAN CANCER
     Dosage: PATIENT RECEIVED MORE THAN SIX CHEMOTHERAPY CYCLES.
     Route: 042
  2. CAELYX [Suspect]
     Indication: OVARIAN CANCER
     Dosage: PATIENT RECEIVED MORE THAN SIX CHEMOTHERAPY CYCLES.
     Route: 042

REACTIONS (1)
  - Death [Fatal]
